FAERS Safety Report 9011502 (Version 1)
Quarter: 2013Q1

REPORT INFORMATION
  Report Type: Spontaneous
  Country: CH (occurrence: CH)
  Receive Date: 20130108
  Receipt Date: 20130108
  Transmission Date: 20140127
  Serious: Yes (Other)
  Sender: FDA-Public Use
  Company Number: CH-TEVA-378581ISR

PATIENT
  Age: 90 Year
  Sex: Female

DRUGS (5)
  1. DICLOFENAC [Suspect]
     Indication: ARTHRALGIA
     Route: 065
  2. ASPIRIN [Concomitant]
     Route: 065
  3. ALLOPURINOL [Concomitant]
     Route: 065
  4. TORASEMIDE [Concomitant]
     Route: 065
  5. VALSARTAN [Concomitant]
     Route: 065

REACTIONS (1)
  - Linear IgA disease [Recovering/Resolving]
